FAERS Safety Report 5456584-8 (Version None)
Quarter: 2007Q3

REPORT INFORMATION
  Report Type: 
  Country: None (occurrence: None)
  Receive Date: 20070918
  Receipt Date: 20070906
  Transmission Date: 20080115
  Serious: Yes (Hospitalization)
  Sender: FDA-Public Use
  Company Number: FR-SANOFI-SYNTHELABO-A02200702638

PATIENT
  Age: 73 Year
  Sex: Male

DRUGS (9)
  1. LERCAN [Concomitant]
     Dosage: UNK
     Route: 048
     Dates: start: 20051201
  2. ASPEGIC 325 [Concomitant]
     Dosage: UNK
     Route: 048
     Dates: start: 20051201
  3. ALTEIS [Suspect]
     Indication: DRUG USE FOR UNKNOWN INDICATION
     Dosage: UNK
     Route: 048
     Dates: start: 20070401
  4. HYPERIUM [Suspect]
     Indication: DRUG USE FOR UNKNOWN INDICATION
     Dosage: UNK
     Route: 048
     Dates: start: 20051201, end: 20070401
  5. ENALAPRIL MALEATE [Suspect]
     Indication: DRUG USE FOR UNKNOWN INDICATION
     Dosage: UNK
     Route: 065
     Dates: start: 20051201, end: 20070401
  6. XATRAL [Suspect]
     Indication: DRUG USE FOR UNKNOWN INDICATION
     Dosage: UNK
     Route: 048
     Dates: start: 20051201, end: 20070401
  7. UMULINE [Concomitant]
     Dosage: UNK
     Route: 058
     Dates: start: 20051201
  8. TAHOR [Concomitant]
     Dosage: UNK
     Route: 048
     Dates: start: 20051201
  9. PRACTAZIN [Concomitant]
     Dosage: UNK
     Route: 048
     Dates: start: 20070401

REACTIONS (1)
  - PSORIASIS [None]
